FAERS Safety Report 5115005-5 (Version None)
Quarter: 2006Q3

REPORT INFORMATION
  Report Type: 
  Country: None (occurrence: None)
  Receive Date: 20060925
  Receipt Date: 20060925
  Transmission Date: 20061208
  Serious: Yes (Other)
  Sender: FDA-Public Use
  Company Number: None

PATIENT
  Age: 52 Year
  Sex: Male
  Weight: 77.1115 kg

DRUGS (1)
  1. ULTRAM [Suspect]
     Indication: PAIN
     Dosage: 1-2 4-6 HR
     Dates: start: 20060911, end: 20060923

REACTIONS (1)
  - RENAL PAIN [None]
